FAERS Safety Report 6549045-6 (Version None)
Quarter: 2010Q1

REPORT INFORMATION
  Report Type: 
  Country: None (occurrence: None)
  Receive Date: 20100119
  Receipt Date: 20090909
  Transmission Date: 20100710
  Serious: Yes (Death, Hospitalization, Other)
  Sender: FDA-Public Use
  Company Number: 2010GW000008

PATIENT
  Sex: Male
  Weight: 56 kg

DRUGS (21)
  1. TAMBOCOR [Suspect]
     Indication: DRUG USE FOR UNKNOWN INDICATION
     Dosage: ; PO
     Route: 048
     Dates: end: 20080929
  2. SUTENT [Suspect]
     Indication: GASTROINTESTINAL STROMAL TUMOUR
     Dosage: 50 MG; QD;, 37.5 MG; QD
     Dates: start: 20090224, end: 20090314
  3. SUTENT [Suspect]
     Indication: GASTROINTESTINAL STROMAL TUMOUR
     Dosage: 50 MG; QD;, 37.5 MG; QD
     Dates: start: 20090407, end: 20090421
  4. SUTENT [Suspect]
     Indication: GASTROINTESTINAL STROMAL TUMOUR
     Dosage: 50 MG; QD;, 37.5 MG; QD
     Dates: start: 20080723
  5. SUTENT [Suspect]
     Indication: GASTROINTESTINAL STROMAL TUMOUR
     Dosage: 50 MG; QD;, 37.5 MG; QD
     Dates: start: 20080917
  6. GLEEVEC [Concomitant]
  7. EURAX H [Concomitant]
  8. XYLOCAINE [Concomitant]
  9. ROPION [Concomitant]
  10. ASPIRIN [Concomitant]
  11. PURSENNID /00142207/ [Concomitant]
  12. RISUMIC [Concomitant]
  13. KERLONG [Concomitant]
  14. CERNILTON /00521401/ [Concomitant]
  15. MARZULENE S [Concomitant]
  16. GASCON [Concomitant]
  17. MAGNESIUM OXIDE [Concomitant]
  18. ELASE /00154301/ [Concomitant]
  19. AZUNOL /00317302/ [Concomitant]
  20. NEOPHAGEN /00467204/ [Concomitant]
  21. WATER FOR INJECTION [Concomitant]

REACTIONS (12)
  - ARRHYTHMIA [None]
  - BENIGN PROSTATIC HYPERPLASIA [None]
  - BRADYCARDIA [None]
  - CONSTIPATION [None]
  - GASTROINTESTINAL STROMAL TUMOUR [None]
  - HYPERTENSION [None]
  - LOSS OF CONSCIOUSNESS [None]
  - METASTASES TO PERITONEUM [None]
  - NEUTROPHIL COUNT DECREASED [None]
  - PLATELET COUNT DECREASED [None]
  - PNEUMONIA [None]
  - WHITE BLOOD CELL COUNT DECREASED [None]
